FAERS Safety Report 24464080 (Version 1)
Quarter: 2024Q4

REPORT INFORMATION
  Report Type: Report from Study
  Country: US (occurrence: US)
  Receive Date: 20241018
  Receipt Date: 20241018
  Transmission Date: 20250115
  Serious: No
  Sender: ROCHE
  Company Number: US-ROCHE-3489803

PATIENT
  Age: 30 Year
  Sex: Female
  Weight: 104.1 kg

DRUGS (11)
  1. XOLAIR [Suspect]
     Active Substance: OMALIZUMAB
     Indication: Asthma
     Route: 058
  2. XOLAIR [Suspect]
     Active Substance: OMALIZUMAB
     Indication: Asthma
  3. SPIRIVA [Concomitant]
     Active Substance: TIOTROPIUM BROMIDE MONOHYDRATE
  4. ADVAIR HFA [Concomitant]
     Active Substance: FLUTICASONE PROPIONATE\SALMETEROL XINAFOATE
  5. ALBUTEROL [Concomitant]
     Active Substance: ALBUTEROL
     Dates: start: 20230901
  6. DUONEB [Concomitant]
     Active Substance: ALBUTEROL SULFATE\IPRATROPIUM BROMIDE
  7. ADVAIR DISKUS [Concomitant]
     Active Substance: FLUTICASONE PROPIONATE\SALMETEROL XINAFOATE
  8. EPIPEN [Concomitant]
     Active Substance: EPINEPHRINE
     Dates: start: 20240102
  9. IPRATROPIUM [Concomitant]
     Active Substance: IPRATROPIUM
  10. OMEPRAZOLE [Concomitant]
     Active Substance: OMEPRAZOLE
  11. BENZONATATE [Concomitant]
     Active Substance: BENZONATATE
     Dates: start: 20230901

REACTIONS (15)
  - Off label use [Unknown]
  - Pneumonia [Recovering/Resolving]
  - Rhinitis [Unknown]
  - Ear pain [Unknown]
  - Sensation of foreign body [Unknown]
  - Headache [Unknown]
  - Dysphonia [Unknown]
  - Nasal congestion [Unknown]
  - Rhinorrhoea [Unknown]
  - Pharyngitis [Unknown]
  - Upper-airway cough syndrome [Unknown]
  - Sinusitis [Unknown]
  - Sinus pain [Unknown]
  - Sneezing [Unknown]
  - Urticaria [Unknown]
